FAERS Safety Report 7805288 (Version 2)
Quarter: 2013Q4

REPORT INFORMATION
  Report Type: Spontaneous
  Country: US (occurrence: US)
  Receive Date: 20110209
  Receipt Date: 20131011
  Transmission Date: 20140711
  Serious: Yes (Hospitalization)
  Sender: FDA-Public Use
  Company Number: US-JNJFOC-20110200327

PATIENT
  Age: 75 Year
  Sex: Female
  Weight: 61.24 kg

DRUGS (4)
  1. SIMPONI [Suspect]
     Indication: RHEUMATOID ARTHRITIS
     Route: 058
     Dates: start: 201010
  2. PREDNISONE [Concomitant]
     Indication: INFLAMMATION
  3. FOSAMAX [Concomitant]
     Indication: BONE DENSITY ABNORMAL
  4. HYDROCHLOROTHIAZIDE [Concomitant]
     Indication: BLOOD PRESSURE

REACTIONS (3)
  - Pneumonia [Recovering/Resolving]
  - Drug dose omission [Not Recovered/Not Resolved]
  - Device malfunction [Not Recovered/Not Resolved]
